FAERS Safety Report 23473999 (Version 4)
Quarter: 2024Q1

REPORT INFORMATION
  Report Type: Report from Study
  Country: CA (occurrence: CA)
  Receive Date: 20240204
  Receipt Date: 20240313
  Transmission Date: 20240409
  Serious: No
  Sender: FDA-Public Use
  Company Number: CA-JNJFOC-20230443825

PATIENT
  Age: 45 Year
  Sex: Female
  Weight: 86 kg

DRUGS (5)
  1. REMICADE [Suspect]
     Active Substance: INFLIXIMAB
     Indication: Crohn^s disease
     Route: 041
  2. REMICADE [Suspect]
     Active Substance: INFLIXIMAB
     Dosage: PATIENT RECEIVED INJECTION ON 15-MAY-2023
     Route: 041
  3. REMICADE [Suspect]
     Active Substance: INFLIXIMAB
     Dosage: PATIENT RECEIVED INJECTION ON 15-MAY-2023
     Route: 041
  4. REMICADE [Suspect]
     Active Substance: INFLIXIMAB
     Route: 041
  5. REMICADE [Suspect]
     Active Substance: INFLIXIMAB
     Route: 041
     Dates: start: 20100531, end: 20240213

REACTIONS (8)
  - Lower respiratory tract infection [Recovered/Resolved]
  - Upper respiratory tract infection [Recovering/Resolving]
  - General physical health deterioration [Not Recovered/Not Resolved]
  - Abdominal distension [Unknown]
  - Abdominal pain [Not Recovered/Not Resolved]
  - COVID-19 [Unknown]
  - Diarrhoea [Unknown]
  - Drug ineffective [Unknown]

NARRATIVE: CASE EVENT DATE: 20230417
